FAERS Safety Report 5478850-2 (Version None)
Quarter: 2007Q4

REPORT INFORMATION
  Report Type: 
  Country: None (occurrence: None)
  Receive Date: 20071002
  Receipt Date: 20070917
  Transmission Date: 20080405
  Serious: Yes (Death)
  Sender: FDA-Public Use
  Company Number: 2007BM000117

PATIENT
  Age: 69 Year
  Sex: Male

DRUGS (6)
  1. PREDNISONE [Suspect]
     Indication: PEMPHIGUS
     Dosage: 5 MG;QD; 40 MG;QD; 25 MG;QD;
     Dates: start: 20010101, end: 20040101
  2. PREDNISONE [Suspect]
     Indication: PEMPHIGUS
     Dosage: 5 MG;QD; 40 MG;QD; 25 MG;QD;
     Dates: start: 20040101
  3. PREDNISONE [Suspect]
     Indication: PEMPHIGUS
     Dosage: 5 MG;QD; 40 MG;QD; 25 MG;QD;
     Dates: start: 20040101
  4. ORAPRED [Suspect]
  5. MYCOPHENOLATE MOFETIL [Concomitant]
  6. CYCLOSPORINE [Concomitant]

REACTIONS (2)
  - HEPATITIS FULMINANT [None]
  - PEMPHIGUS [None]
